FAERS Safety Report 12113803 (Version 1)
Quarter: 2016Q1

REPORT INFORMATION
  Report Type: Spontaneous
  Country: US (occurrence: None)
  Receive Date: 20160224
  Receipt Date: 20160224
  Transmission Date: 20160526
  Serious: Yes (Other)
  Sender: FDA-Public Use
  Company Number: None

PATIENT
  Age: 55 Year
  Sex: Female
  Weight: 81.65 kg

DRUGS (1)
  1. ENOXAPARIN [Suspect]
     Active Substance: ENOXAPARIN
     Indication: ANTICOAGULANT THERAPY
     Dosage: 40 MG/0.4 ML DAILY SUBCUTANEOUS
     Route: 058
     Dates: start: 20160205, end: 20160214

REACTIONS (6)
  - Skin discolouration [None]
  - Dizziness [None]
  - Hypoaesthesia [None]
  - Cardiac disorder [None]
  - Nausea [None]
  - Hyperaesthesia [None]

NARRATIVE: CASE EVENT DATE: 20160208
